FAERS Safety Report 22933205 (Version 3)
Quarter: 2023Q4

REPORT INFORMATION
  Report Type: Spontaneous
  Country: UY (occurrence: None)
  Receive Date: 20230912
  Receipt Date: 20231116
  Transmission Date: 20240109
  Serious: Yes (Other)
  Sender: FDA-Public Use
  Company Number: UY-ROCHE-3417767

PATIENT
  Sex: Female

DRUGS (1)
  1. OCREVUS [Suspect]
     Active Substance: OCRELIZUMAB
     Indication: Multiple sclerosis
     Dosage: ON 22-AUG SHE RECEIVED THE 2ND PART OF THE 1ST DOSE
     Route: 065

REACTIONS (5)
  - Decreased appetite [Recovering/Resolving]
  - Nausea [Recovering/Resolving]
  - Transaminases increased [Recovering/Resolving]
  - Hepatic failure [Recovering/Resolving]
  - Blood bilirubin abnormal [Recovering/Resolving]

NARRATIVE: CASE EVENT DATE: 20230827
